FAERS Safety Report 9717916 (Version 1)
Quarter: 2013Q4

REPORT INFORMATION
  Report Type: Spontaneous
  Country: US (occurrence: US)
  Receive Date: 20131125
  Receipt Date: 20131125
  Transmission Date: 20140711
  Serious: No
  Sender: FDA-Public Use
  Company Number: US-VIVUS-2013V1000316

PATIENT
  Age: 62 Year
  Sex: Female
  Weight: 70.37 kg

DRUGS (13)
  1. QSYMIA 7.5MG/46MG [Suspect]
     Indication: WEIGHT DECREASED
     Route: 048
     Dates: start: 20130311
  2. QSYMIA 3.75MG/23MG [Suspect]
     Indication: WEIGHT DECREASED
     Route: 048
     Dates: start: 201301, end: 20130310
  3. ARTHROTEC [Concomitant]
     Indication: ARTHRITIS
     Dates: start: 20130321, end: 20130418
  4. INDERAL [Concomitant]
     Indication: PALPITATIONS
  5. SYNTHROID [Concomitant]
     Indication: THYROID DISORDER
  6. OMEPRAZOLE [Concomitant]
     Indication: GASTROOESOPHAGEAL REFLUX DISEASE
  7. CALCITRIOL [Concomitant]
     Indication: PRODUCT USED FOR UNKNOWN INDICATION
  8. PREDNISONE [Concomitant]
     Indication: IMMUNE SYSTEM DISORDER
     Dates: start: 2000
  9. METFORMIN [Concomitant]
     Indication: GLUCOSE TOLERANCE IMPAIRED
  10. FOLIC ACID [Concomitant]
     Indication: PRODUCT USED FOR UNKNOWN INDICATION
  11. ELAVIL [Concomitant]
     Indication: HEADACHE
  12. CITRACAL [Concomitant]
     Indication: PRODUCT USED FOR UNKNOWN INDICATION
  13. GLUCOSAMINE [Concomitant]
     Indication: BONE DISORDER

REACTIONS (1)
  - Urticaria [Not Recovered/Not Resolved]
